FAERS Safety Report 10195890 (Version 1)
Quarter: 2014Q2

REPORT INFORMATION
  Report Type: Spontaneous
  Country: US (occurrence: None)
  Receive Date: 20140521
  Receipt Date: 20140521
  Transmission Date: 20141212
  Serious: Yes (Other)
  Sender: FDA-Public Use
  Company Number: FK201401808

PATIENT
  Age: 35 Year
  Sex: Female

DRUGS (10)
  1. VALPROATE (MANUFACTURER UNKNOWN) (VALPROATE SODIUM) (VALPROATE SODIUM) [Suspect]
     Indication: STATUS EPILEPTICUS
  2. KETAMINE [Concomitant]
  3. LACOSAMIDE [Concomitant]
  4. LEVETIRACETAM [Concomitant]
  5. VIGABATRIN [Concomitant]
  6. PHENOBARBITAL [Concomitant]
  7. PROPOFOL [Concomitant]
  8. CLOBAZAM [Concomitant]
  9. PREGABALIN [Concomitant]
  10. TOPIRAMATE [Concomitant]

REACTIONS (4)
  - Off label use [None]
  - Acidosis [None]
  - Hyperkalaemia [None]
  - Oliguria [None]
